FAERS Safety Report 16651392 (Version 1)
Quarter: 2019Q3

REPORT INFORMATION
  Report Type: Spontaneous
  Country: US (occurrence: US)
  Receive Date: 20190731
  Receipt Date: 20190731
  Transmission Date: 20191004
  Serious: No
  Sender: FDA-Public Use
  Company Number: US-JNJFOC-20190740581

PATIENT
  Age: 70 Year
  Sex: Male

DRUGS (4)
  1. IMBRUVICA [Suspect]
     Active Substance: IBRUTINIB
     Indication: CHRONIC LYMPHOCYTIC LEUKAEMIA
     Route: 065
     Dates: start: 20180401
  2. CYCLOSPORINE. [Interacting]
     Active Substance: CYCLOSPORINE
  3. IMBRUVICA [Interacting]
     Active Substance: IBRUTINIB
     Route: 065
  4. IMBRUVICA [Interacting]
     Active Substance: IBRUTINIB
     Route: 065

REACTIONS (4)
  - Weight decreased [Recovering/Resolving]
  - Failure to thrive [Recovering/Resolving]
  - Drug interaction [Unknown]
  - Decreased appetite [Recovering/Resolving]
